FAERS Safety Report 7983358-6 (Version None)
Quarter: 2011Q4

REPORT INFORMATION
  Report Type: 
  Country: None (occurrence: None)
  Receive Date: 20111215
  Receipt Date: 20111208
  Transmission Date: 20120403
  Serious: Yes (Other)
  Sender: FDA-Public Use
  Company Number: DE-BAYER-2011-118704

PATIENT
  Sex: Female

DRUGS (7)
  1. DIOVAN HCT [Suspect]
     Indication: HYPERTENSION
  2. DIOVAN HCT [Suspect]
     Dosage: 80/12.5 MG
     Dates: start: 20091204, end: 20100325
  3. DIOVAN [Suspect]
     Dosage: 160 MG
     Dates: start: 20091117, end: 20100325
  4. DIOVAN [Suspect]
     Dosage: UNK
     Dates: start: 20100326, end: 20100326
  5. DIOVAN [Suspect]
  6. ACETYLSALICYLIC ACID SRT [Suspect]
     Indication: CAROTID ARTERY STENOSIS
     Dosage: 100 MG, BID
     Dates: start: 20031001, end: 20100419
  7. DIOVAN HCT [Suspect]
     Dosage: UNK
     Dates: start: 20100320, end: 20100320

REACTIONS (18)
  - GAMMA-GLUTAMYLTRANSFERASE INCREASED [None]
  - ABDOMINAL TENDERNESS [None]
  - THROMBIN TIME PROLONGED [None]
  - DECREASED APPETITE [None]
  - NAUSEA [None]
  - ALANINE AMINOTRANSFERASE INCREASED [None]
  - HAIR DISORDER [None]
  - BLOOD LACTATE DEHYDROGENASE INCREASED [None]
  - FATIGUE [None]
  - ALPHA 1 GLOBULIN INCREASED [None]
  - ABDOMINAL DISTENSION [None]
  - ASPARTATE AMINOTRANSFERASE INCREASED [None]
  - GLOMERULAR FILTRATION RATE DECREASED [None]
  - DRY SKIN [None]
  - MALAISE [None]
  - DISTURBANCE IN ATTENTION [None]
  - HEPATITIS [None]
  - BIOPSY LIVER ABNORMAL [None]
